FAERS Safety Report 17875275 (Version 2)
Quarter: 2021Q4

REPORT INFORMATION
  Report Type: Spontaneous
  Country: CA (occurrence: CA)
  Receive Date: 20200609
  Receipt Date: 20211222
  Transmission Date: 20220303
  Serious: Yes (Other)
  Sender: FDA-Public Use
  Company Number: None

PATIENT
  Age: 58 Year
  Sex: Male

DRUGS (1)
  1. QUETIAPINE FUMARATE [Suspect]
     Active Substance: QUETIAPINE FUMARATE
     Indication: Product used for unknown indication
     Route: 048

REACTIONS (9)
  - Urinary incontinence [Unknown]
  - Somnolence [Unknown]
  - Muscle twitching [Unknown]
  - Grimacing [Unknown]
  - Gait disturbance [Unknown]
  - Facial paralysis [Unknown]
  - Emotional distress [Unknown]
  - Drooling [Unknown]
  - Communication disorder [Unknown]
